FAERS Safety Report 5716059-5 (Version None)
Quarter: 2008Q2

REPORT INFORMATION
  Report Type: 
  Country: None (occurrence: None)
  Receive Date: 20080423
  Receipt Date: 20080423
  Transmission Date: 20081010
  Serious: Yes (Other)
  Sender: FDA-Public Use
  Company Number: None

PATIENT
  Sex: Male
  Weight: 76.81 kg

DRUGS (1)
  1. GADOLINIUM [Suspect]
     Indication: NUCLEAR MAGNETIC RESONANCE IMAGING
     Dosage: 30 ML

REACTIONS (9)
  - BLOOD PRESSURE SYSTOLIC INCREASED [None]
  - COUGH [None]
  - DYSPNOEA [None]
  - ERYTHEMA [None]
  - PARAESTHESIA ORAL [None]
  - PHARYNGEAL OEDEMA [None]
  - RESPIRATORY RATE INCREASED [None]
  - SWOLLEN TONGUE [None]
  - THROAT TIGHTNESS [None]
